FAERS Safety Report 6574630-5 (Version None)
Quarter: 2010Q1

REPORT INFORMATION
  Report Type: 
  Country: None (occurrence: None)
  Receive Date: 20100128
  Receipt Date: 20100114
  Transmission Date: 20100710
  Serious: Yes (Life-Threatening, Hospitalization, Other)
  Sender: FDA-Public Use
  Company Number: THYM-1001341

PATIENT
  Age: 54 Year
  Sex: Male
  Weight: 57 kg

DRUGS (6)
  1. THYMOGLOBULIN [Suspect]
     Indication: APLASTIC ANAEMIA
     Dosage: 225 MG, QD, INTRAVENOUS
     Route: 042
     Dates: start: 20090529, end: 20090602
  2. CYCLOSPORINE [Concomitant]
  3. VALACYCLOVIR [Concomitant]
  4. POSACONAZOLE [Concomitant]
  5. SULFAMETHOXAZOLE AND TRIMETHOPRIM [Concomitant]
  6. URAPIDIL (URAPIDIL) [Concomitant]

REACTIONS (4)
  - APLASTIC ANAEMIA [None]
  - DISEASE PROGRESSION [None]
  - NO THERAPEUTIC RESPONSE [None]
  - SJOGREN'S SYNDROME [None]
